FAERS Safety Report 10142079 (Version 1)
Quarter: 2014Q2

REPORT INFORMATION
  Report Type: Spontaneous
  Country: JP (occurrence: JP)
  Receive Date: 20140429
  Receipt Date: 20140429
  Transmission Date: 20141212
  Serious: Yes (Other)
  Sender: FDA-Public Use
  Company Number: JP-009507513-1404JPN014946

PATIENT
  Sex: 0

DRUGS (1)
  1. FOSAMAC TABLETS-5 [Suspect]
     Route: 048

REACTIONS (2)
  - Osteonecrosis [Unknown]
  - Tooth disorder [Unknown]
